FAERS Safety Report 17086641 (Version 1)
Quarter: 2019Q4

REPORT INFORMATION
  Report Type: Spontaneous
  Country: US (occurrence: US)
  Receive Date: 20191031
  Receipt Date: 20191031
  Transmission Date: 20200122
  Serious: No
  Sender: FDA-Public Use
  Company Number: None

PATIENT
  Age: 85 Year
  Sex: Male

DRUGS (1)
  1. LISINOPRIL. [Suspect]
     Active Substance: LISINOPRIL
     Indication: HYPERTENSION
     Route: 048
     Dates: start: 20120828, end: 20190807

REACTIONS (4)
  - Blood urea increased [None]
  - Acute kidney injury [None]
  - Hypoaesthesia [None]
  - Fluid intake reduced [None]

NARRATIVE: CASE EVENT DATE: 20190823
